FAERS Safety Report 23839092 (Version 1)
Quarter: 2024Q2

REPORT INFORMATION
  Report Type: Spontaneous
  Country: US (occurrence: US)
  Receive Date: 20240509
  Receipt Date: 20240509
  Transmission Date: 20240715
  Serious: No
  Sender: FDA-Public Use
  Company Number: US-Millicent Holdings Ltd.-MILL20240873

PATIENT

DRUGS (2)
  1. FEMRING [Suspect]
     Active Substance: ESTRADIOL ACETATE
     Indication: Hormone replacement therapy
     Dosage: 0.10 MG, UNKNOWN
     Route: 067
     Dates: start: 20240221, end: 202402
  2. FEMRING [Suspect]
     Active Substance: ESTRADIOL ACETATE
     Dosage: UNKNOWN
     Route: 067

REACTIONS (4)
  - Migraine [Recovered/Resolved]
  - Headache [Recovered/Resolved]
  - Screaming [Recovered/Resolved]
  - Product physical issue [None]

NARRATIVE: CASE EVENT DATE: 20240201
